FAERS Safety Report 6755024-6 (Version None)
Quarter: 2010Q2

REPORT INFORMATION
  Report Type: 
  Country: None (occurrence: None)
  Receive Date: 20100603
  Receipt Date: 20100524
  Transmission Date: 20101027
  Serious: Yes (Other)
  Sender: FDA-Public Use
  Company Number: GB-ABBOTT-09P-167-0564984-00

PATIENT
  Sex: Female
  Weight: 51 kg

DRUGS (2)
  1. HUMIRA [Suspect]
     Indication: CROHN'S DISEASE
     Route: 058
     Dates: start: 20081110, end: 20090317
  2. HUMIRA [Suspect]

REACTIONS (10)
  - ALOPECIA [None]
  - ECZEMA [None]
  - INJECTION SITE PRURITUS [None]
  - INJECTION SITE RASH [None]
  - INJECTION SITE REACTION [None]
  - INJECTION SITE SWELLING [None]
  - PARAESTHESIA ORAL [None]
  - RASH [None]
  - RASH GENERALISED [None]
  - RASH PRURITIC [None]
